FAERS Safety Report 7240766-9 (Version None)
Quarter: 2011Q1

REPORT INFORMATION
  Report Type: 
  Country: None (occurrence: None)
  Receive Date: 20110120
  Receipt Date: 20110120
  Transmission Date: 20110831
  Serious: Yes (Life-Threatening, Disabling, Other)
  Sender: FDA-Public Use
  Company Number: None

PATIENT
  Sex: Male
  Weight: 81.6475 kg

DRUGS (2)
  1. PREDNISONE [Suspect]
     Indication: RASH
     Dosage: 2 TWICE A DAY 6205557
     Dates: start: 20050406, end: 20060405
  2. BEXTRA [Suspect]
     Indication: PAIN
     Dosage: 1 TWICE A DAY TWICE A DAY N439769
     Dates: start: 20020224, end: 20030630

REACTIONS (5)
  - HEARING IMPAIRED [None]
  - STEVENS-JOHNSON SYNDROME [None]
  - BACK DISORDER [None]
  - VISUAL ACUITY REDUCED [None]
  - MOBILITY DECREASED [None]
